FAERS Safety Report 4442322-4 (Version None)
Quarter: 2004Q3

REPORT INFORMATION
  Report Type: 
  Country: None (occurrence: None)
  Receive Date: 20040903
  Receipt Date: 20040719
  Transmission Date: 20050211
  Serious: Yes (Other)
  Sender: FDA-Public Use
  Company Number: 2004UW15046

PATIENT
  Age: 84 Year
  Sex: Female
  Weight: 60.3284 kg

DRUGS (12)
  1. CRESTOR [Suspect]
     Indication: BLOOD CHOLESTEROL INCREASED
     Dosage: 10 MG PO
     Route: 048
     Dates: start: 20040619
  2. WARFARIN SODIUM [Concomitant]
  3. BENICAR [Concomitant]
  4. SYNTHROID [Concomitant]
  5. CELEXA [Concomitant]
  6. CELEBREX [Concomitant]
  7. POTASSIUM [Concomitant]
  8. LASIX [Concomitant]
  9. PREVACID [Concomitant]
  10. QUINIDINE HCL [Concomitant]
  11. DIGOXIN [Concomitant]
  12. ZETIA [Concomitant]

REACTIONS (2)
  - COLD SWEAT [None]
  - OEDEMA PERIPHERAL [None]
